FAERS Safety Report 8127460-7 (Version None)
Quarter: 2011Q4

REPORT INFORMATION
  Report Type: 
  Country: None (occurrence: None)
  Receive Date: 20111227
  Receipt Date: 20111118
  Transmission Date: 20120403
  Serious: No
  Sender: FDA-Public Use
  Company Number: PHEH2011US009790

PATIENT
  Age: 48 Year
  Sex: Female

DRUGS (5)
  1. TYLENOL (PARACETAMOL) TABLET [Concomitant]
  2. GILENYA [Suspect]
     Dosage: 0.5 MG, QD, ORAL
     Route: 048
  3. EPIPEN (EPINEPHRINE) INJECTION [Concomitant]
  4. MULTIVITAMINS (ASCORBIC ACID, ERGOCALCIFEROL, FOLIC ACID, NICOTINAMIDE [Concomitant]
  5. ANTIHISTAMINES (NO INGREDIENTS/SUBSTANCES) CAPSULE [Concomitant]

REACTIONS (3)
  - BACK PAIN [None]
  - DYSPNOEA [None]
  - CHEST DISCOMFORT [None]
